FAERS Safety Report 13111236 (Version 2)
Quarter: 2017Q1

REPORT INFORMATION
  Report Type: Spontaneous
  Country: None (occurrence: US)
  Receive Date: 20170112
  Receipt Date: 20170213
  Transmission Date: 20170428
  Serious: No
  Sender: FDA-Public Use
  Company Number: US-MEDAC PHARMA, INC.-1061968

PATIENT
  Age: 61 Year
  Sex: Female
  Weight: 90.91 kg

DRUGS (2)
  1. PREDNISONE. [Concomitant]
     Active Substance: PREDNISONE
  2. RASUVO [Suspect]
     Active Substance: METHOTREXATE SODIUM
     Indication: UVEITIS
     Route: 058
     Dates: start: 20161216

REACTIONS (2)
  - Injection site pain [Recovering/Resolving]
  - Product use issue [None]

NARRATIVE: CASE EVENT DATE: 20161216
